FAERS Safety Report 5893381-3 (Version None)
Quarter: 2008Q3

REPORT INFORMATION
  Report Type: 
  Country: None (occurrence: None)
  Receive Date: 20080923
  Receipt Date: 20080919
  Transmission Date: 20090109
  Serious: Yes (Hospitalization, Other)
  Sender: FDA-Public Use
  Company Number: US-MERCK-0707USA02685

PATIENT
  Age: 76 Year
  Sex: Female
  Weight: 71 kg

DRUGS (2)
  1. FOSAMAX [Suspect]
     Indication: OSTEOPOROSIS
     Route: 048
     Dates: start: 20020801, end: 20060801
  2. FOSAMAX [Suspect]
     Route: 048
     Dates: start: 19960101

REACTIONS (17)
  - ARTERIOSCLEROSIS [None]
  - CROHN'S DISEASE [None]
  - DENTAL CARIES [None]
  - DIVERTICULITIS [None]
  - FIBROCYSTIC BREAST DISEASE [None]
  - GASTRITIS [None]
  - GINGIVAL DISORDER [None]
  - HYPERTENSION [None]
  - LIGAMENT SPRAIN [None]
  - OSTEOARTHRITIS [None]
  - OSTEOMYELITIS [None]
  - OSTEONECROSIS [None]
  - RECTAL HAEMORRHAGE [None]
  - RHEUMATOID ARTHRITIS [None]
  - RHINITIS ALLERGIC [None]
  - ROSACEA [None]
  - SEBORRHOEIC KERATOSIS [None]
